FAERS Safety Report 24794715 (Version 1)
Quarter: 2024Q4

REPORT INFORMATION
  Report Type: Spontaneous
  Country: US (occurrence: None)
  Receive Date: 20241230
  Receipt Date: 20241230
  Transmission Date: 20250115
  Serious: Yes (Life-Threatening, Hospitalization)
  Sender: Public
  Company Number: None

PATIENT
  Age: 67 Year
  Sex: Male
  Weight: 77.11 kg

DRUGS (1)
  1. ASPIRIN [Suspect]
     Active Substance: ASPIRIN
     Indication: Chest pain
     Dosage: FREQUENCY : DAILY;?
     Route: 048
     Dates: start: 20241218, end: 20241218

REACTIONS (4)
  - Cerebral palsy [None]
  - Speech disorder [None]
  - Angioedema [None]
  - Stridor [None]

NARRATIVE: CASE EVENT DATE: 20241218
